FAERS Safety Report 5491504-1 (Version None)
Quarter: 2007Q4

REPORT INFORMATION
  Report Type: 
  Country: None (occurrence: None)
  Receive Date: 20071022
  Receipt Date: 20071018
  Transmission Date: 20080405
  Serious: Yes (Death, Hospitalization)
  Sender: FDA-Public Use
  Company Number: PHBS2007RU09376

PATIENT
  Sex: Female

DRUGS (1)
  1. STALEVO 100 [Suspect]
     Indication: MULTIPLE SYSTEM ATROPHY
     Route: 065

REACTIONS (4)
  - ANURIA [None]
  - CHROMATURIA [None]
  - DEATH [None]
  - URINARY TRACT DISORDER [None]
